FAERS Safety Report 7781388-0 (Version None)
Quarter: 2011Q3

REPORT INFORMATION
  Report Type: 
  Country: None (occurrence: None)
  Receive Date: 20110923
  Receipt Date: 20110909
  Transmission Date: 20111222
  Serious: Yes (Hospitalization)
  Sender: FDA-Public Use
  Company Number: 11-001032

PATIENT
  Age: 43 Year
  Sex: Female

DRUGS (1)
  1. DORYX [Suspect]
     Dosage: 50 MG, ORAL
     Route: 048
     Dates: start: 20110722, end: 20110728

REACTIONS (3)
  - JOINT SWELLING [None]
  - OEDEMA PERIPHERAL [None]
  - PARAESTHESIA ORAL [None]
